FAERS Safety Report 6018224-9 (Version None)
Quarter: 2008Q4

REPORT INFORMATION
  Report Type: 
  Country: None (occurrence: None)
  Receive Date: 20081223
  Receipt Date: 20081217
  Transmission Date: 20090506
  Serious: Yes (Hospitalization)
  Sender: FDA-Public Use
  Company Number: US-ELI_LILLY_AND_COMPANY-US200811002019

PATIENT
  Sex: Female

DRUGS (8)
  1. BYETTA [Suspect]
     Indication: TYPE 2 DIABETES MELLITUS
     Dosage: 5 UG, 2/D
     Route: 058
     Dates: start: 20050101, end: 20050101
  2. BYETTA [Suspect]
     Dosage: 10 UG, 2/D
     Route: 058
     Dates: start: 20050101
  3. GLUCOPHAGE [Concomitant]
     Indication: TYPE 2 DIABETES MELLITUS
     Dosage: 500 MG, DAILY (1/D)
     Route: 048
  4. AVALIDE [Concomitant]
     Dosage: UNK, DAILY (1/D)
     Route: 048
  5. NORVASC [Concomitant]
     Dosage: 5 MG, DAILY (1/D)
     Route: 048
  6. LYRICA [Concomitant]
     Dosage: 75 MG, 2/D
  7. CELEBREX [Concomitant]
     Indication: ARTHRITIS
     Route: 048
     Dates: end: 20080701
  8. CELEXA [Concomitant]
     Dosage: 20 MG, DAILY (1/D)
     Route: 048

REACTIONS (3)
  - ARTHRITIS [None]
  - DYSPEPSIA [None]
  - NAUSEA [None]
